FAERS Safety Report 6275741-4 (Version None)
Quarter: 2009Q3

REPORT INFORMATION
  Report Type: 
  Country: None (occurrence: None)
  Receive Date: 20090721
  Receipt Date: 20090714
  Transmission Date: 20100115
  Serious: Yes (Other)
  Sender: FDA-Public Use
  Company Number: PHHY2009BR29218

PATIENT
  Age: 36 Year
  Sex: Male
  Weight: 110 kg

DRUGS (1)
  1. GALVUS MET COMBIPACK [Suspect]
     Dosage: 850/50 MG
     Dates: start: 20070701

REACTIONS (1)
  - THYROID CANCER [None]
